FAERS Safety Report 4416527-2 (Version None)
Quarter: 2004Q3

REPORT INFORMATION
  Report Type: 
  Country: None (occurrence: None)
  Receive Date: 20040802
  Receipt Date: 20040615
  Transmission Date: 20050211
  Serious: Yes (Hospitalization)
  Sender: FDA-Public Use
  Company Number: D01200402170

PATIENT
  Age: 57 Year
  Sex: Male
  Weight: 89 kg

DRUGS (4)
  1. CISPLATIN [Suspect]
     Indication: CARCINOMA
     Dosage: 100 MG/M2 OTHER - INTRAVENOUS NOS
     Route: 042
     Dates: start: 20031110, end: 20031110
  2. CHLORHEXIDINE [Concomitant]
  3. ROXITHROMYCIN [Concomitant]
  4. ACETAMINOPHEN [Concomitant]

REACTIONS (4)
  - BETA HAEMOLYTIC STREPTOCOCCAL INFECTION [None]
  - CELLULITIS [None]
  - POSTOPERATIVE INFECTION [None]
  - RADIATION INJURY [None]
